FAERS Safety Report 8547906-X (Version None)
Quarter: 2012Q3

REPORT INFORMATION
  Report Type: 
  Country: None (occurrence: None)
  Receive Date: 20120728
  Receipt Date: 20120716
  Transmission Date: 20120928
  Serious: Yes (Death, Hospitalization)
  Sender: FDA-Public Use
  Company Number: JP-ACCORD-014152

PATIENT
  Age: 51 Year
  Sex: Male

DRUGS (8)
  1. ETOPOSIDE [Suspect]
  2. CYTARABINE [Suspect]
  3. PREDNISOLONE [Suspect]
  4. DOXORUBICIN HYDROCHLORIDE [Suspect]
  5. RITUXIMAB [Suspect]
  6. CYCLOPHOSPHAMIDE [Suspect]
  7. DEXAMETHASONE [Suspect]
  8. ONCOVIN [Suspect]

REACTIONS (4)
  - PNEUMONIA CYTOMEGALOVIRAL [None]
  - LYMPHOPROLIFERATIVE DISORDER [None]
  - OFF LABEL USE [None]
  - RESPIRATORY DISORDER [None]
